FAERS Safety Report 4745779-4 (Version None)
Quarter: 2005Q3

REPORT INFORMATION
  Report Type: 
  Country: None (occurrence: None)
  Receive Date: 20050816
  Receipt Date: 20040930
  Transmission Date: 20060218
  Serious: No
  Sender: FDA-Public Use
  Company Number: US-BRISTOL-MYERS SQUIBB COMPANY-12720892

PATIENT
  Sex: Female

DRUGS (1)
  1. LAC-HYDRIN [Suspect]
     Indication: RASH
     Route: 061

REACTIONS (2)
  - RASH [None]
  - SKIN BURNING SENSATION [None]
